FAERS Safety Report 4884121-5 (Version None)
Quarter: 2006Q1

REPORT INFORMATION
  Report Type: 
  Country: None (occurrence: None)
  Receive Date: 20060118
  Receipt Date: 20060109
  Transmission Date: 20060701
  Serious: Yes (Hospitalization, Disabling)
  Sender: FDA-Public Use
  Company Number: US-MERCK-0601USA01265

PATIENT
  Age: 63 Year
  Sex: Male
  Weight: 105 kg

DRUGS (13)
  1. VIOXX [Suspect]
     Indication: ARTHRITIS
     Route: 048
     Dates: start: 20040101, end: 20040901
  2. VIOXX [Suspect]
     Route: 048
     Dates: start: 20040101, end: 20040901
  3. BACLOFEN [Concomitant]
     Route: 065
  4. PLAVIX [Concomitant]
     Route: 065
  5. LISINOPRIL [Concomitant]
     Route: 065
  6. NEURONTIN [Concomitant]
     Route: 065
  7. NEXIUM [Concomitant]
     Route: 065
  8. MELATONIN [Concomitant]
     Route: 065
  9. CLARITIN [Concomitant]
     Route: 065
  10. DOCUSATE SODIUM [Concomitant]
     Route: 065
  11. ZOCOR [Concomitant]
     Route: 048
  12. ACIPHEX [Concomitant]
     Route: 065
  13. AGGRENOX [Concomitant]
     Route: 065

REACTIONS (7)
  - ANXIETY [None]
  - DEPRESSION [None]
  - MONARTHRITIS [None]
  - SCIATICA [None]
  - SPONDYLITIS [None]
  - SPONDYLOLYSIS [None]
  - TRANSIENT ISCHAEMIC ATTACK [None]
